FAERS Safety Report 14251452 (Version 2)
Quarter: 2017Q4

REPORT INFORMATION
  Report Type: Spontaneous
  Country: JP (occurrence: JP)
  Receive Date: 20171205
  Receipt Date: 20171214
  Transmission Date: 20180321
  Serious: Yes (Hospitalization)
  Sender: FDA-Public Use
  Company Number: PHJP2017JP035386

PATIENT
  Age: 83 Year
  Sex: Female

DRUGS (3)
  1. STALEVO [Suspect]
     Active Substance: CARBIDOPA\ENTACAPONE\LEVODOPA
     Indication: PARKINSON^S DISEASE
     Dosage: 1 DF: CARBIDOPA UNK/ ENTACAPONE 100MG/ LEVODOPA UNK, UNK
     Route: 048
  2. NEODOPASTON [Concomitant]
     Active Substance: CARBIDOPA\LEVODOPA
     Indication: PRODUCT USED FOR UNKNOWN INDICATION
     Dosage: UNK
     Route: 065
  3. STALEVO [Suspect]
     Active Substance: CARBIDOPA\ENTACAPONE\LEVODOPA
     Dosage: 1 DF: CARBIDOPA UNK/ ENTACAPONE 100MG/ LEVODOPA UNK, UNK
     Route: 048

REACTIONS (1)
  - Gastrointestinal disorder [Recovered/Resolved]
